FAERS Safety Report 6946028-9 (Version None)
Quarter: 2010Q3

REPORT INFORMATION
  Report Type: 
  Country: None (occurrence: None)
  Receive Date: 20100827
  Receipt Date: 20100819
  Transmission Date: 20110219
  Serious: Yes (Hospitalization, Other)
  Sender: FDA-Public Use
  Company Number: DE-AMGEN-QUU407458

PATIENT
  Sex: Male
  Weight: 58.8 kg

DRUGS (9)
  1. ARANESP [Suspect]
     Indication: DIALYSIS
     Route: 058
     Dates: start: 20070606
  2. SIMVASTATIN [Concomitant]
  3. FUROSEMIDE [Concomitant]
  4. FERRLECIT [Concomitant]
     Route: 042
  5. FOSRENOL [Concomitant]
  6. METOPROLOL SUCCINATE [Concomitant]
  7. CINACALCET HYDROCHLORIDE [Concomitant]
  8. UNSPECIFIED MEDICATION [Concomitant]
  9. DREISAVIT [Concomitant]

REACTIONS (7)
  - ANTI-ERYTHROPOIETIN ANTIBODY POSITIVE [None]
  - APLASIA PURE RED CELL [None]
  - BLOOD COUNT ABNORMAL [None]
  - DECREASED APPETITE [None]
  - PERFORMANCE STATUS DECREASED [None]
  - RESPIRATORY DISTRESS [None]
  - THERAPEUTIC RESPONSE DECREASED [None]
